FAERS Safety Report 11771956 (Version 1)
Quarter: 2015Q4

REPORT INFORMATION
  Report Type: Report from Study
  Country: JP (occurrence: JP)
  Receive Date: 20151124
  Receipt Date: 20151124
  Transmission Date: 20160304
  Serious: Yes (Life-Threatening, Other)
  Sender: FDA-Public Use
  Company Number: JP-AMGEN-JPNCT2015124739

PATIENT
  Age: 24 Month
  Sex: Female
  Weight: 10 kg

DRUGS (46)
  1. VENETLIN [Concomitant]
     Active Substance: ALBUTEROL SULFATE
     Dosage: UNK
     Route: 055
  2. NADIFLO [Concomitant]
     Indication: ECZEMA
     Dosage: UNK
     Route: 061
  3. PRODIF [Concomitant]
     Active Substance: FOSFLUCONAZOLE
     Dosage: UNK
     Route: 042
  4. KCL CORRECTIVE [Concomitant]
     Indication: RENAL APLASIA
     Dosage: UNK
     Route: 041
  5. DORMICUM                           /00634103/ [Concomitant]
     Dosage: UNK
     Route: 065
  6. FOIPAN [Concomitant]
     Active Substance: CAMOSTAT MESYLATE
     Indication: PANCREATIC CYST
     Dosage: UNK
     Route: 048
  7. STERICLON [Concomitant]
     Indication: RENAL APLASIA
     Dosage: UNK
     Route: 065
  8. ADEROXAL [Concomitant]
     Active Substance: PYRIDOXAL PHOSPHATE
     Indication: MALNUTRITION
     Dosage: UNK
     Route: 048
  9. DAIKENCHUTO [Concomitant]
     Active Substance: HERBALS
     Dosage: UNK
     Route: 048
  10. GENTACIN [Concomitant]
     Active Substance: GENTAMICIN SULFATE
     Dosage: UNK
     Route: 061
  11. CEFAMEZIN ALPHA [Concomitant]
     Active Substance: CEFAZOLIN SODIUM
     Indication: RENAL APLASIA
     Dosage: UNK
     Route: 065
  12. ELEJECT [Concomitant]
     Indication: MALNUTRITION
     Dosage: UNK
  13. ESLAX [Concomitant]
     Active Substance: ROCURONIUM BROMIDE
     Indication: RENAL APLASIA
     Dosage: UNK
     Route: 042
  14. AMLODIPINE                         /00972402/ [Concomitant]
     Active Substance: AMLODIPINE BESYLATE
     Indication: HYPERTENSION
     Dosage: UNK
     Route: 048
  15. AZUNOL                             /00620101/ [Concomitant]
     Indication: ECZEMA
     Dosage: UNK
     Route: 061
  16. ZINC OXIDE SIMPLE OINTMENT [Concomitant]
     Active Substance: ZINC OXIDE
     Indication: ECZEMA
     Dosage: UNK
     Route: 061
  17. LOCOID [Concomitant]
     Active Substance: HYDROCORTISONE BUTYRATE
     Indication: ECZEMA
     Dosage: UNK
     Route: 061
  18. PREDONINE [Concomitant]
     Active Substance: PREDNISOLONE\PREDNISOLONE ACETATE\PREDNISOLONE SODIUM SUCCINATE
     Dosage: UNK
     Route: 061
  19. PRECIPITATED CALCIUM CARBONATE [Concomitant]
     Active Substance: CALCIUM CARBONATE
     Indication: RENAL APLASIA
     Dosage: UNK
     Route: 048
  20. HEPARIN SODIUM. [Concomitant]
     Active Substance: HEPARIN SODIUM
     Indication: RENAL APLASIA
     Dosage: UNK
     Route: 065
  21. ATARAX-P                           /00058402/ [Concomitant]
     Active Substance: HYDROXYZINE HYDROCHLORIDE
     Indication: RENAL APLASIA
     Dosage: UNK
     Route: 065
  22. BIO-THREE [Concomitant]
     Active Substance: HERBALS
     Dosage: UNK
     Route: 048
  23. BISOLVON [Concomitant]
     Active Substance: BROMHEXINE HYDROCHLORIDE
     Indication: PANCREATIC CYST
     Dosage: UNK
     Route: 048
  24. HYALEIN [Concomitant]
     Active Substance: HYALURONATE SODIUM
     Dosage: UNK
     Route: 047
  25. RESTAMIN                           /00000401/ [Concomitant]
     Indication: ECZEMA
     Dosage: UNK
     Route: 061
  26. INOVAN                             /00360702/ [Concomitant]
     Indication: RENAL APLASIA
     Dosage: UNK
     Route: 042
  27. DARBEPOETIN ALFA - KHK [Suspect]
     Active Substance: DARBEPOETIN ALFA
     Indication: PRODUCT USED FOR UNKNOWN INDICATION
     Dosage: 5 MUG, QWK
     Route: 042
     Dates: start: 20140814, end: 20140822
  28. KAYEXALATE [Concomitant]
     Active Substance: SODIUM POLYSTYRENE SULFONATE
     Indication: RENAL APLASIA
     Dosage: UNK
     Route: 048
  29. HUMULIN R [Concomitant]
     Active Substance: INSULIN HUMAN
     Indication: RENAL APLASIA
     Dosage: UNK
     Route: 065
  30. ULTIVA [Concomitant]
     Active Substance: REMIFENTANIL HYDROCHLORIDE
     Indication: RENAL APLASIA
     Dosage: UNK
  31. DIOVAN [Concomitant]
     Active Substance: VALSARTAN
     Indication: HYPERTENSION
     Dosage: UNK
     Route: 048
  32. L CARTIN [Concomitant]
     Indication: MALNUTRITION
     Dosage: UNK
     Route: 048
  33. ELCITONIN [Concomitant]
     Active Substance: ELCATONIN
     Indication: HYPERPARATHYROIDISM SECONDARY
     Dosage: UNK
     Route: 065
  34. TRICLORYL [Concomitant]
     Active Substance: TRICLOFOS SODIUM
     Dosage: UNK
     Route: 048
  35. KAYTWO N [Concomitant]
     Active Substance: MENATETRENONE
     Indication: MALNUTRITION
     Dosage: UNK
     Route: 042
  36. VITAJECT                           /00176001/ [Concomitant]
     Indication: MALNUTRITION
     Dosage: UNK
     Route: 042
  37. FENTANYL. [Concomitant]
     Active Substance: FENTANYL
     Indication: RENAL APLASIA
     Dosage: UNK
     Route: 065
  38. ESCRE [Concomitant]
     Dosage: UNK
     Route: 054
  39. SODIUM BICARBONATE. [Concomitant]
     Active Substance: SODIUM BICARBONATE
     Indication: RENAL APLASIA
     Dosage: UNK
     Route: 048
  40. HIRUDOID                           /00723701/ [Concomitant]
     Indication: ECZEMA
     Dosage: UNK
     Route: 061
  41. BROMHEXINE HYDROCHLORIDE [Concomitant]
     Active Substance: BROMHEXINE HYDROCHLORIDE
     Dosage: UNK
     Route: 055
  42. RINDERON VG [Concomitant]
     Active Substance: BETAMETHASONE VALERATE\GENTAMICIN SULFATE
     Indication: ECZEMA
     Dosage: UNK
     Route: 061
  43. KIDMIN                             /01983701/ [Concomitant]
     Indication: RENAL APLASIA
     Dosage: UNK
     Route: 041
  44. NICARDIPINE HYDROCHLORIDE. [Concomitant]
     Active Substance: NICARDIPINE HYDROCHLORIDE
     Indication: HYPERTENSION
     Dosage: UNK
     Route: 042
  45. MEYLON [Concomitant]
     Active Substance: SODIUM BICARBONATE
     Indication: RENAL APLASIA
     Dosage: UNK
     Route: 042
  46. PLEAMIN P [Concomitant]
     Indication: MALNUTRITION
     Dosage: UNK
     Route: 041

REACTIONS (11)
  - Aspartate aminotransferase increased [Recovered/Resolved]
  - Gamma-glutamyltransferase increased [Not Recovered/Not Resolved]
  - Blood lactate dehydrogenase increased [Recovering/Resolving]
  - Blood alkaline phosphatase increased [Not Recovered/Not Resolved]
  - Gastrointestinal haemorrhage [Recovering/Resolving]
  - White blood cell count decreased [Recovered/Resolved]
  - Haemorrhagic cyst [Recovering/Resolving]
  - Shock haemorrhagic [Recovered/Resolved]
  - Device related infection [Recovering/Resolving]
  - Bronchitis [Recovering/Resolving]
  - Encephalopathy [Recovering/Resolving]

NARRATIVE: CASE EVENT DATE: 20140814
